FAERS Safety Report 9170375 (Version 1)
Quarter: 2013Q1

REPORT INFORMATION
  Report Type: Spontaneous
  Country: US (occurrence: US)
  Receive Date: 20130319
  Receipt Date: 20130319
  Transmission Date: 20140127
  Serious: Yes (Hospitalization)
  Sender: FDA-Public Use
  Company Number: US-BAYER-2013-031935

PATIENT
  Age: 43 Year
  Sex: Female
  Weight: 59.86 kg

DRUGS (9)
  1. YASMIN [Suspect]
     Indication: CONTRACEPTION
  2. YASMIN [Suspect]
     Indication: MENORRHAGIA
  3. YASMIN [Suspect]
     Indication: DYSMENORRHOEA
  4. YAZ [Suspect]
  5. BONIVA [Concomitant]
     Dosage: 150 MG, UNK
     Route: 048
     Dates: start: 20070115
  6. TIZANIDINE HYDROCHLORIDE [Concomitant]
     Dosage: 2 MG, UNK
     Route: 048
     Dates: start: 20070115
  7. TAMIFLU [Concomitant]
     Dosage: 75 MG, UNK
     Route: 048
     Dates: start: 20070302
  8. ZANAFLEX [Concomitant]
     Dosage: UNK
     Dates: start: 20070311
  9. MULTIVITAMIN [Concomitant]
     Dosage: DAILY

REACTIONS (2)
  - Pulmonary embolism [None]
  - Deep vein thrombosis [None]
